FAERS Safety Report 10211384 (Version 1)
Quarter: 2014Q2

REPORT INFORMATION
  Report Type: Spontaneous
  Country: US (occurrence: US)
  Receive Date: 20140602
  Receipt Date: 20140602
  Transmission Date: 20141212
  Serious: Yes (Other)
  Sender: FDA-Public Use
  Company Number: US-ELI_LILLY_AND_COMPANY-US201405009854

PATIENT
  Sex: 0

DRUGS (3)
  1. GEMCITABINE HYDROCHLORIDE [Suspect]
     Indication: HODGKIN^S DISEASE
     Dosage: 800 MG/M2, SINGLE
     Route: 042
  2. MELPHALAN [Concomitant]
     Indication: HODGKIN^S DISEASE
     Dosage: 70 MG/M2, OTHER
     Route: 065
  3. FLUDARABINE [Concomitant]
     Indication: HODGKIN^S DISEASE
     Dosage: 33 MG/M2, OTHER
     Route: 042

REACTIONS (1)
  - Mucosal inflammation [Unknown]
